FAERS Safety Report 19684924 (Version 2)
Quarter: 2021Q3

REPORT INFORMATION
  Report Type: Spontaneous
  Country: US (occurrence: US)
  Receive Date: 20210811
  Receipt Date: 20210820
  Transmission Date: 20211014
  Serious: Yes (Hospitalization, Other)
  Sender: FDA-Public Use
  Company Number: US-AXELLIA-003861

PATIENT
  Age: 58 Year
  Sex: Male

DRUGS (12)
  1. LISINOPRIL. [Concomitant]
     Active Substance: LISINOPRIL
  2. BUMETANIDE. [Concomitant]
     Active Substance: BUMETANIDE
  3. ENOXAPARIN [Concomitant]
     Active Substance: ENOXAPARIN
  4. FLUOXETINE [Concomitant]
     Active Substance: FLUOXETINE HYDROCHLORIDE
  5. TRAZODONE [Concomitant]
     Active Substance: TRAZODONE HYDROCHLORIDE
  6. VANCOMYCIN [Suspect]
     Active Substance: VANCOMYCIN
     Indication: CELLULITIS
     Route: 042
  7. GABAPENTIN. [Concomitant]
     Active Substance: GABAPENTIN
  8. INSULIN ASPART [Concomitant]
     Active Substance: INSULIN ASPART
  9. METOPROLOL. [Concomitant]
     Active Substance: METOPROLOL
  10. CEFEPIME [Concomitant]
     Active Substance: CEFEPIME HYDROCHLORIDE
     Indication: CELLULITIS
     Route: 042
  11. ASPIRIN. [Concomitant]
     Active Substance: ASPIRIN
  12. NICOTINE. [Concomitant]
     Active Substance: NICOTINE

REACTIONS (5)
  - Chills [Recovered/Resolved]
  - Chest pain [Recovered/Resolved]
  - Thrombocytopenia [Recovered/Resolved]
  - Respiratory distress [Recovered/Resolved]
  - Tachycardia [Recovered/Resolved]
